FAERS Safety Report 8955768 (Version 1)
Quarter: 2012Q4

REPORT INFORMATION
  Report Type: 
  Country: CA (occurrence: CA)
  Receive Date: 20121210
  Receipt Date: 20121210
  Transmission Date: 20130627
  Serious: Yes (Hospitalization, Other)
  Sender: FDA-Public Use
  Company Number: CA-B.I. PHARMACEUTICALS,INC./RIDGEFIELD-2012-CN-02487CN

PATIENT
  Age: 83 Year
  Sex: Female
  Weight: 75 kg

DRUGS (13)
  1. PRADAX [Suspect]
     Dosage: 220 mg
     Route: 048
  2. ACETAMINOPHEN [Concomitant]
  3. AMLODIPINE [Concomitant]
  4. ATENOLOL, BP [Concomitant]
  5. ATORVASTATIN CALCIUM [Concomitant]
  6. CALCIUM [Concomitant]
  7. COZAAR [Concomitant]
  8. DOCUSATE SODIUM [Concomitant]
  9. EXELON [Concomitant]
  10. PERINDOPRIL [Concomitant]
  11. SENNOSIDES [Concomitant]
  12. SODIUM CHLORIDE [Concomitant]
  13. VITAMIN D [Concomitant]

REACTIONS (3)
  - Confusional state [Recovered/Resolved]
  - Haematuria [Recovered/Resolved]
  - Urinary tract infection [Recovered/Resolved]
